FAERS Safety Report 7214084 (Version 9)
Quarter: 2012Q4

REPORT INFORMATION
  Report Type: 
  Country: CA (occurrence: CA)
  Receive Date: 20091214
  Receipt Date: 20120917
  Transmission Date: 20130627
  Serious: Yes (Other)
  Sender: FDA-Public Use
  Company Number: PHHY2009CA21420

PATIENT
  Sex: Female

DRUGS (1)
  1. SANDOSTATIN LAR [Suspect]
     Indication: METASTATIC CARCINOID TUMOUR
     Dosage: 20 mg, every 4 weeks
     Route: 030
     Dates: start: 20090515

REACTIONS (4)
  - Blood pressure diastolic decreased [Unknown]
  - Heart rate decreased [Unknown]
  - Cough [Unknown]
  - Blood pressure systolic increased [Unknown]
